FAERS Safety Report 5335889-5 (Version None)
Quarter: 2007Q2

REPORT INFORMATION
  Report Type: 
  Country: None (occurrence: None)
  Receive Date: 20070301
  Receipt Date: 20061208
  Transmission Date: 20071010
  Serious: No
  Sender: FDA-Public Use
  Company Number: 233209

PATIENT
  Age: 13 Year
  Sex: Female
  Weight: 31.1 kg

DRUGS (2)
  1. NUTROPIN AQ [Suspect]
     Indication: GROWTH HORMONE DEFICIENCY
     Dosage: 1.4 MG, 6/WEEK
     Dates: start: 20040804, end: 20061129
  2. FERINSOL (FERROUS SULFATE) [Concomitant]

REACTIONS (1)
  - SCOLIOSIS [None]
